FAERS Safety Report 11289322 (Version 1)
Quarter: 2015Q3

REPORT INFORMATION
  Report Type: Spontaneous
  Country: CH (occurrence: FR)
  Receive Date: 20150721
  Receipt Date: 20150721
  Transmission Date: 20151125
  Serious: Yes (Hospitalization)
  Sender: FDA-Public Use
  Company Number: CH-LPDUSPRD-20150566

PATIENT
  Age: 91 Year
  Sex: Female

DRUGS (19)
  1. FERINJECT [Suspect]
     Active Substance: FERRIC CARBOXYMALTOSE
     Dosage: 1000 MG
     Route: 041
     Dates: start: 20150408, end: 20150408
  2. GAVISCON [Concomitant]
     Active Substance: ALUMINUM HYDROXIDE\MAGNESIUM CARBONATE
     Dosage: 2 DOSAGE FORMS, 2 IN 1 D
     Route: 065
  3. AZOPT [Concomitant]
     Active Substance: BRINZOLAMIDE
     Dosage: 3 DOSAGE FORMS 3 IN 1 D
     Route: 065
  4. KARDEGIC [Concomitant]
     Active Substance: ASPIRIN LYSINE
     Dosage: 75 MG 1 IN 1 D
     Route: 065
  5. DOLIPRANE [Concomitant]
     Active Substance: ACETAMINOPHEN
     Dosage: 1 GM 2 IN 1 D
     Route: 065
  6. INEXIUM [Concomitant]
     Active Substance: ESOMEPRAZOLE
     Dosage: 40 MG 1 IN 1 D
     Route: 065
  7. SERETIDE [Concomitant]
     Active Substance: FLUTICASONE FUROATE\SALMETEROL XINAFOATE
     Dosage: 500 MG, 2 IN 1 D
     Route: 065
  8. SPIRIVA [Concomitant]
     Active Substance: TIOTROPIUM BROMIDE MONOHYDRATE
     Dosage: 1 DOSAGE FORM  1 IN 1 D
     Route: 065
  9. TAMESTA [Concomitant]
     Dosage: 0.5 MG 1 IN 1 D
     Route: 065
  10. XALACOM [Concomitant]
     Active Substance: LATANOPROST\TIMOLOL MALEATE
     Dosage: 1 DOSAGE FORM 1 IN 1 D
     Route: 065
  11. LASILIX [Concomitant]
     Active Substance: FUROSEMIDE
     Dosage: 20 MG 1 IN 1 D
     Route: 065
  12. PRAVASTATIN SODIUM. [Concomitant]
     Active Substance: PRAVASTATIN SODIUM
     Dosage: 20 MG 1 IN 1 D
     Route: 065
  13. DOMPERIDONE [Concomitant]
     Active Substance: DOMPERIDONE
     Dosage: 10 MG 1 IN 1 D
     Route: 065
  14. STILNOX [Concomitant]
     Active Substance: ZOLPIDEM TARTRATE
     Dosage: 1 DOSAGE FORM, 1 IN 1D
     Route: 065
  15. ATACAND [Concomitant]
     Active Substance: CANDESARTAN CILEXETIL
     Dosage: 8 MG 1 IN 1 D
     Route: 065
  16. DISCOTRINE [Concomitant]
     Active Substance: NITROGLYCERIN
     Dosage: 10 MG 1 IN 1 D
     Route: 065
  17. DIAMOX SEQUELS [Concomitant]
     Active Substance: ACETAZOLAMIDE
     Dosage: 2 DOSAGE FORMS 2 IN 1 D
     Route: 065
  18. METOSPASMYL [Concomitant]
     Dosage: 3 DOSAGE FORMS 3 IN 1 D
     Route: 065
  19. ALPHAGAN P [Concomitant]
     Active Substance: BRIMONIDINE TARTRATE
     Dosage: 2 DOSAGE FORMS 2 IN 1 D
     Route: 065

REACTIONS (4)
  - Extravasation [Recovering/Resolving]
  - Pain [Recovered/Resolved]
  - Peripheral swelling [Unknown]
  - Skin discolouration [Unknown]

NARRATIVE: CASE EVENT DATE: 201504
